FAERS Safety Report 23197459 (Version 1)
Quarter: 2023Q4

REPORT INFORMATION
  Report Type: Spontaneous
  Country: IT (occurrence: IT)
  Receive Date: 20231117
  Receipt Date: 20231117
  Transmission Date: 20240109
  Serious: Yes (Other)
  Sender: FDA-Public Use
  Company Number: IT-SPARK THERAPEUTICS INC.-IT-SPK-23-00078

PATIENT
  Age: 72 Year
  Sex: Male

DRUGS (2)
  1. LUXTURNA [Suspect]
     Active Substance: VORETIGENE NEPARVOVEC-RZYL
     Dosage: UNK, SINGLE, SUBRETINAL
     Dates: start: 20230404, end: 20230404
  2. LUXTURNA [Suspect]
     Active Substance: VORETIGENE NEPARVOVEC-RZYL
     Dosage: UNK
     Dates: start: 20230404, end: 20230404

REACTIONS (2)
  - Atrial fibrillation [Recovered/Resolved]
  - Product use issue [Unknown]

NARRATIVE: CASE EVENT DATE: 20230615
